FAERS Safety Report 10792567 (Version 2)
Quarter: 2015Q1

REPORT INFORMATION
  Report Type: Spontaneous
  Country: FR (occurrence: FR)
  Receive Date: 20150213
  Receipt Date: 20150219
  Transmission Date: 20150721
  Serious: Yes (Hospitalization)
  Sender: FDA-Public Use
  Company Number: PHHY2015FR014995

PATIENT
  Age: 64 Year
  Sex: Male

DRUGS (1)
  1. ONBREZ [Suspect]
     Active Substance: INDACATEROL
     Indication: CHRONIC OBSTRUCTIVE PULMONARY DISEASE
     Route: 065

REACTIONS (2)
  - Respiratory distress [Recovered/Resolved]
  - Acute respiratory failure [Recovered/Resolved]
